FAERS Safety Report 26196200 (Version 1)
Quarter: 2025Q4

REPORT INFORMATION
  Report Type: Spontaneous
  Country: EU (occurrence: EU)
  Receive Date: 20251224
  Receipt Date: 20251224
  Transmission Date: 20260117
  Serious: Yes (Other)
  Sender: ACCORD
  Company Number: None

PATIENT
  Age: 42 Year
  Sex: Female
  Weight: 61 kg

DRUGS (3)
  1. CARBOPLATIN [Suspect]
     Active Substance: CARBOPLATIN
     Indication: Breast cancer
     Dosage: AUC: 1.5 DAYS: 1-8-15 Q: 21 DAYS
     Dates: start: 20250617, end: 202510
  2. PEMBROLIZUMAB [Suspect]
     Active Substance: PEMBROLIZUMAB
     Indication: Breast cancer
     Dosage: 200 MG FLAT DOSE EVERY 21 DAYS. DRUG TEMPORARILY SUSPENDED FROM 06/10 TO?06/11/2025
  3. PACLITAXEL [Interacting]
     Active Substance: PACLITAXEL
     Indication: Breast cancer
     Dosage: DAYS: 1-8-15 Q: 21 DAYS
     Dates: start: 20250617, end: 202510

REACTIONS (8)
  - Glucocorticoid deficiency [Recovered/Resolved]
  - Blood corticotrophin decreased [Recovered/Resolved]
  - Asthenia [Recovered/Resolved]
  - Decreased appetite [Recovered/Resolved]
  - Vomiting [Recovered/Resolved]
  - Dyspnoea [Recovered/Resolved]
  - Adrenal insufficiency [Recovered/Resolved]
  - Hypopituitarism [Recovered/Resolved]

NARRATIVE: CASE EVENT DATE: 20251006
